FAERS Safety Report 5297744-9 (Version None)
Quarter: 2007Q2

REPORT INFORMATION
  Report Type: 
  Country: None (occurrence: None)
  Receive Date: 20070412
  Receipt Date: 20070412
  Transmission Date: 20071010
  Serious: Yes (Hospitalization)
  Sender: FDA-Public Use
  Company Number: None

PATIENT
  Age: 24 Year
  Sex: Female
  Weight: 54.4316 kg

DRUGS (1)
  1. ISONIAZID [Suspect]
     Indication: ANTIBIOTIC PROPHYLAXIS
     Dosage: 300MG DAILY PO
     Route: 048
     Dates: start: 20070408, end: 20070411

REACTIONS (1)
  - HEPATITIS [None]
